FAERS Safety Report 21317700 (Version 1)
Quarter: 2022Q3

REPORT INFORMATION
  Report Type: Spontaneous
  Country: US (occurrence: US)
  Receive Date: 20220911
  Receipt Date: 20220911
  Transmission Date: 20221026
  Serious: No
  Sender: FDA-Public Use
  Company Number: US-SA-SAC20220825000557

PATIENT
  Sex: Female
  Weight: 116.1 kg

DRUGS (1)
  1. KEVZARA [Suspect]
     Active Substance: SARILUMAB
     Dosage: 200MG, EVERY 2 WEEKS
     Route: 058

REACTIONS (1)
  - Hypersensitivity [Unknown]
